FAERS Safety Report 13356497 (Version 1)
Quarter: 2017Q1

REPORT INFORMATION
  Report Type: Spontaneous
  Country: DE (occurrence: DE)
  Receive Date: 20170321
  Receipt Date: 20170321
  Transmission Date: 20170429
  Serious: Yes (Other)
  Sender: FDA-Public Use
  Company Number: DE-PFIZER INC-2017112055

PATIENT
  Age: 56 Year
  Sex: Male
  Weight: 110 kg

DRUGS (2)
  1. VENLAFAXINE HCL [Suspect]
     Active Substance: VENLAFAXINE HYDROCHLORIDE
     Indication: DEPRESSION
     Dosage: 75 MG, 1X/DAY
     Dates: start: 201604
  2. NOVAMINSULFON LICHTENSTEIN [Interacting]
     Active Substance: METAMIZOLE SODIUM
     Indication: CHILLS
     Dosage: 1 DF, 3X/DAY
     Route: 048
     Dates: start: 20170301

REACTIONS (6)
  - Confusional state [Recovered/Resolved]
  - Drug interaction [Unknown]
  - Nightmare [Recovered/Resolved]
  - Delusion [Recovered/Resolved]
  - Hallucination [Recovered/Resolved]
  - Abnormal dreams [Recovered/Resolved]

NARRATIVE: CASE EVENT DATE: 20170302
